FAERS Safety Report 6759080-0 (Version None)
Quarter: 2010Q2

REPORT INFORMATION
  Report Type: 
  Country: None (occurrence: None)
  Receive Date: 20100603
  Receipt Date: 20100521
  Transmission Date: 20101027
  Serious: Yes (Other)
  Sender: FDA-Public Use
  Company Number: 2010US001752

PATIENT

DRUGS (1)
  1. VAPRISOL [Suspect]
     Indication: DRUG USE FOR UNKNOWN INDICATION
     Dosage: IV NOS
     Route: 042

REACTIONS (1)
  - ELECTROCARDIOGRAM T WAVE INVERSION [None]
